FAERS Safety Report 10274925 (Version 2)
Quarter: 2014Q3

REPORT INFORMATION
  Report Type: Spontaneous
  Country: US (occurrence: US)
  Receive Date: 20140702
  Receipt Date: 20140812
  Transmission Date: 20150326
  Serious: Yes (Other)
  Sender: FDA-Public Use
  Company Number: US-AMGEN INC.-USASP2014049172

PATIENT
  Age: 57 Year
  Sex: Female

DRUGS (2)
  1. ENBREL [Suspect]
     Active Substance: ETANERCEPT
     Indication: RHEUMATOID ARTHRITIS
     Dosage: 25 MG, 2 TIMES/WK
     Route: 065
     Dates: start: 199905, end: 20140207
  2. METHOTREXATE [Concomitant]
     Active Substance: METHOTREXATE
     Dosage: 25 MG, QWK
     Route: 048
     Dates: end: 20140207

REACTIONS (4)
  - B-cell lymphoma [Unknown]
  - Non-Hodgkin^s lymphoma [Unknown]
  - Osteoarthritis [Not Recovered/Not Resolved]
  - Musculoskeletal stiffness [Not Recovered/Not Resolved]

NARRATIVE: CASE EVENT DATE: 2003
